FAERS Safety Report 23565542 (Version 1)
Quarter: 2024Q1

REPORT INFORMATION
  Report Type: Report from Study
  Country: IT (occurrence: IT)
  Receive Date: 20240226
  Receipt Date: 20240226
  Transmission Date: 20240410
  Serious: Yes (Other)
  Sender: FDA-Public Use
  Company Number: IT-PFIZER INC-PV202400024964

PATIENT

DRUGS (5)
  1. METHOTREXATE SODIUM [Suspect]
     Active Substance: METHOTREXATE SODIUM
     Indication: Osteosarcoma
     Dosage: 12 G/M2 (FIVE CYCLES, TWO PREOPERATIVELY AND THREE IN THE POSTOPERATIVE PHASE)
  2. CISPLATIN [Suspect]
     Active Substance: CISPLATIN
     Indication: Osteosarcoma
     Dosage: 120 MG/M2, CYCLIC, 5 CYCLES, TWO PREOPERATIVELY AND THREE IN THE POSTOPERATIVE PHASE
  3. DOXORUBICIN HYDROCHLORIDE [Suspect]
     Active Substance: DOXORUBICIN HYDROCHLORIDE
     Indication: Osteosarcoma
     Dosage: 75 MG/M2 COMBINED WITH CDP IN THE FIRST TWO PREOPERATIVE CYCLES
  4. DOXORUBICIN HYDROCHLORIDE [Suspect]
     Active Substance: DOXORUBICIN HYDROCHLORIDE
     Dosage: 90 MG/M2 AS SINGLE AGENT IN THE THREE POSTOPER?ATIVE CYCLES
  5. IFOSFAMIDE [Suspect]
     Active Substance: IFOSFAMIDE
     Indication: Osteosarcoma
     Dosage: 2 G/M2/DAY FOR 5 CONSECUTIVE DAYS

REACTIONS (1)
  - Myelodysplastic syndrome [Unknown]
